FAERS Safety Report 6044854-4 (Version None)
Quarter: 2009Q1

REPORT INFORMATION
  Report Type: 
  Country: None (occurrence: None)
  Receive Date: 20090116
  Receipt Date: 20090116
  Transmission Date: 20090719
  Serious: Yes (Hospitalization, Other)
  Sender: FDA-Public Use
  Company Number: None

PATIENT
  Age: 30 Year
  Sex: Female
  Weight: 72.5755 kg

DRUGS (9)
  1. LANTUS [Suspect]
     Indication: TYPE 1 DIABETES MELLITUS
     Dosage: ENOUGH TO 'CONTROL' DAILY SQ
     Route: 058
     Dates: start: 19850701, end: 20060531
  2. HUMALOG [Suspect]
     Indication: TYPE 1 DIABETES MELLITUS
     Dosage: ENOUGH TO 'CONTROL BG' DAILY SQ
     Route: 058
     Dates: start: 20060615, end: 20060630
  3. ELI LILLY HUMULIN INSULIN - REGULAR [Concomitant]
  4. ELI LILLY HUMULIN INSULIN -NPH [Concomitant]
  5. ELI LILLY HUMULIN INSULIN - LENTE [Concomitant]
  6. ELI LILLY HUMULIN INSULIN - HUMALOG SANOFI-AVENTIS LANTUS [Concomitant]
  7. SANOFI-AVENTIS APIDRA [Concomitant]
  8. NOVO NORDISK LEVEMIRE [Concomitant]
  9. NOVO NORDISK NOVOLOG [Concomitant]

REACTIONS (2)
  - MEDICATION ERROR [None]
  - PRODUCT QUALITY ISSUE [None]
